FAERS Safety Report 9608416 (Version 1)
Quarter: 2013Q4

REPORT INFORMATION
  Report Type: Report from Study
  Country: DE (occurrence: DE)
  Receive Date: 20131009
  Receipt Date: 20131009
  Transmission Date: 20140711
  Serious: Yes (Hospitalization)
  Sender: FDA-Public Use
  Company Number: DE-AMGEN-DEUCT2013069234

PATIENT
  Age: 50 Year
  Sex: Male

DRUGS (3)
  1. PANITUMUMAB [Suspect]
     Indication: CHOLANGIOCARCINOMA
     Dosage: 9 MG/KG, UNK
     Route: 065
     Dates: start: 20130528
  2. GEMCITABINE [Concomitant]
     Indication: COLORECTAL CANCER METASTATIC
     Dosage: 1000 MG/M2, UNK
     Dates: start: 20130528
  3. CISPLATIN [Concomitant]
     Indication: COLORECTAL CANCER METASTATIC
     Dosage: 25 MG/M2, UNK
     Dates: start: 20130528

REACTIONS (1)
  - Device related infection [Not Recovered/Not Resolved]
